FAERS Safety Report 7829398-9 (Version None)
Quarter: 2011Q4

REPORT INFORMATION
  Report Type: 
  Country: None (occurrence: None)
  Receive Date: 20111020
  Receipt Date: 20111014
  Transmission Date: 20120403
  Serious: Yes (Hospitalization, Other)
  Sender: FDA-Public Use
  Company Number: CH-BAYER-2011-098901

PATIENT
  Age: 89 Year
  Sex: Male

DRUGS (3)
  1. ASPIRIN [Suspect]
     Dosage: 100 MG, QD
     Route: 048
     Dates: end: 20110401
  2. CARVEDILOL [Concomitant]
     Dosage: UNK
  3. ENALAPRIL MALEATE [Concomitant]
     Dosage: UNK

REACTIONS (1)
  - HAEMOPTYSIS [None]
